FAERS Safety Report 8326626-0 (Version None)
Quarter: 2012Q2

REPORT INFORMATION
  Report Type: 
  Country: None (occurrence: None)
  Receive Date: 20120501
  Receipt Date: 20090904
  Transmission Date: 20120825
  Serious: No
  Sender: FDA-Public Use
  Company Number: US-TEVA-2009010181

PATIENT
  Sex: Male
  Weight: 138.92 kg

DRUGS (18)
  1. CARVEDILOL [Concomitant]
     Indication: CARDIAC FAILURE CONGESTIVE
     Dates: start: 20090801
  2. KLONOPIN [Concomitant]
  3. ZYPREXA [Concomitant]
     Indication: PSYCHOTIC DISORDER
     Dates: start: 19970101
  4. SEROQUEL [Concomitant]
     Indication: ANXIETY
     Dates: start: 20070101
  5. LEVOTHYROXINE SODIUM [Concomitant]
     Indication: THYROID DISORDER
     Dates: start: 19940101
  6. BUMETANIDE [Concomitant]
     Dates: start: 20090301
  7. UROXATRAL [Concomitant]
     Dates: start: 20090301
  8. DEPAKOTE ER [Concomitant]
     Indication: PSYCHOTIC DISORDER
     Dates: start: 19970101
  9. ENALAPRIL MALEATE [Concomitant]
     Indication: BIPOLAR DISORDER
     Dates: start: 20090801
  10. LANTUS [Concomitant]
     Indication: DIABETES MELLITUS
     Dates: start: 20090301
  11. LITHIUM CARBONATE [Concomitant]
     Indication: BIPOLAR DISORDER
     Dates: start: 19750101
  12. NOVOLOG [Concomitant]
     Indication: DIABETES MELLITUS
     Dates: start: 20090301
  13. CRESTOR [Concomitant]
     Dates: start: 20030101
  14. TESTOSTERONE [Concomitant]
     Dates: start: 20090301
  15. NUVIGIL [Suspect]
     Indication: SLEEP APNOEA SYNDROME
     Dosage: 150 MILLIGRAM;
     Route: 048
     Dates: start: 20090801
  16. CELEXA [Concomitant]
     Indication: DEPRESSION
     Dates: start: 19990101
  17. METFORMIN HCL [Concomitant]
     Indication: DIABETES MELLITUS
     Dates: start: 20030101
  18. VESICARE [Concomitant]
     Dates: start: 20090101

REACTIONS (1)
  - DRUG INEFFECTIVE [None]
